FAERS Safety Report 25892675 (Version 1)
Quarter: 2025Q4

REPORT INFORMATION
  Report Type: Spontaneous
  Country: EU (occurrence: EU)
  Receive Date: 20251007
  Receipt Date: 20251007
  Transmission Date: 20260118
  Serious: Yes (Other)
  Sender: PFIZER
  Company Number: None

PATIENT
  Age: 78 Year
  Sex: Female
  Weight: 80 kg

DRUGS (3)
  1. CARBOPLATIN [Suspect]
     Active Substance: CARBOPLATIN
     Indication: Small cell lung cancer
     Dosage: 470 MG, EVERY 3 WEEKS
     Route: 042
     Dates: start: 20250416, end: 20250619
  2. ETOPOSIDE [Suspect]
     Active Substance: ETOPOSIDE
     Indication: Small cell lung cancer
     Dosage: 184 MG, EVERY 3 WEEKS
     Route: 042
     Dates: start: 20250416, end: 20250619
  3. EYLEA [Concomitant]
     Active Substance: AFLIBERCEPT
     Indication: Detachment of retinal pigment epithelium
     Dosage: 1 DF, MONTHLY (IN VIAL)
     Route: 050
     Dates: start: 20250520, end: 20250715

REACTIONS (1)
  - Macular oedema [Not Recovered/Not Resolved]

NARRATIVE: CASE EVENT DATE: 20250909
